FAERS Safety Report 10337011 (Version 2)
Quarter: 2014Q3

REPORT INFORMATION
  Report Type: Spontaneous
  Country: US (occurrence: US)
  Receive Date: 20140723
  Receipt Date: 20140902
  Transmission Date: 20150326
  Serious: Yes (Other)
  Sender: FDA-Public Use
  Company Number: US-PFIZER INC-2014204663

PATIENT
  Age: 49 Year
  Sex: Male
  Weight: 93.9 kg

DRUGS (22)
  1. BROMFED DM [Concomitant]
     Active Substance: BROMPHENIRAMINE MALEATE\DEXTROMETHORPHAN HYDROBROMIDE\PSEUDOEPHEDRINE HYDROCHLORIDE
     Indication: COUGH
     Dosage: UNK, 4X/DAY (2 MG-10 MG-30 MG/5 ML 10 ML ORALLY 4 TIMES A DAY PRN)
     Route: 048
  2. DEPO-TESTOSTERONE [Suspect]
     Active Substance: TESTOSTERONE CYPIONATE
     Dosage: 20 TO 30MG, MONTHLY
     Dates: start: 2014, end: 201402
  3. LEVSIN [Concomitant]
     Active Substance: HYOSCYAMINE SULFATE
     Dosage: 0.125 MG, 4X/DAY
     Route: 048
  4. BROMFED DM [Concomitant]
     Active Substance: BROMPHENIRAMINE MALEATE\DEXTROMETHORPHAN HYDROBROMIDE\PSEUDOEPHEDRINE HYDROCHLORIDE
     Indication: NASAL CONGESTION
  5. AMOXICILLIN. [Concomitant]
     Active Substance: AMOXICILLIN
     Dosage: 875 MG, 2X/DAY
     Route: 048
  6. AMITRIPTYLINE [Concomitant]
     Active Substance: AMITRIPTYLINE
     Dosage: 200 MG, 1X/DAY (AT BEDTIME)
     Route: 048
  7. DIAZEPAM. [Concomitant]
     Active Substance: DIAZEPAM
     Dosage: 10 MG, 3X/DAY
     Route: 048
  8. HYDROCODONE [Concomitant]
     Active Substance: HYDROCODONE
     Indication: PAIN
     Dosage: UNK
  9. MONTELUKAST SODIUM. [Concomitant]
     Active Substance: MONTELUKAST SODIUM
     Dosage: 10 MG, 1X/DAY (IN THE EVENING)
     Route: 048
  10. DEPO-TESTOSTERONE [Suspect]
     Active Substance: TESTOSTERONE CYPIONATE
     Indication: BLOOD TESTOSTERONE DECREASED
     Dosage: 20 TO 30MG, WEEKLY
     Dates: start: 2012
  11. ADVAIR DISKUS [Concomitant]
     Active Substance: FLUTICASONE PROPIONATE\SALMETEROL XINAFOATE
     Indication: ASTHMA
     Dosage: UNK 2X/DAY (500 MCG-50 MCG 1 PUFF(S) INHALED 2 TIMES A DAY)
  12. DEPO-TESTOSTERONE [Suspect]
     Active Substance: TESTOSTERONE CYPIONATE
     Dosage: 200 MG, MONTHLY (ONLY RECEIVED 1 SHOT 12NOV2013)
     Route: 030
     Dates: start: 20131112
  13. SIMVASTATIN. [Concomitant]
     Active Substance: SIMVASTATIN
     Dosage: 10 MG, 1X/DAY (AT BEDTIME)
     Route: 048
  14. TRAZODONE [Concomitant]
     Active Substance: TRAZODONE HYDROCHLORIDE
     Indication: SLEEP DISORDER
     Dosage: 50 MG, UNK (1-2 TAB(S) ORALLY QHS)
     Route: 048
  15. VICODIN [Concomitant]
     Active Substance: ACETAMINOPHEN\HYDROCODONE BITARTRATE
     Indication: PAIN
     Dosage: UNK 3X/DAY (500 MG-5 MG PRN)
     Route: 048
  16. ORPHENADRINE CITRATE. [Concomitant]
     Active Substance: ORPHENADRINE CITRATE
     Dosage: 100 MG, 2X/DAY
     Route: 048
  17. NAPROXEN. [Concomitant]
     Active Substance: NAPROXEN
     Dosage: 500 MG, 2X/DAY
     Route: 048
  18. MULTIVITAMINS W/FLUORIDE [Concomitant]
     Dosage: 1 UNK, 1X/DAY
     Route: 048
  19. TIZANIDINE HYDROCHLORIDE. [Concomitant]
     Active Substance: TIZANIDINE HYDROCHLORIDE
     Dosage: 4 MG, 2X/DAY (EVERY 12 HOURS)
     Route: 048
  20. OMEPRAZOLE. [Concomitant]
     Active Substance: OMEPRAZOLE
     Dosage: 40 MG, 1X/DAY (WITH DINNER)
     Route: 048
  21. NORCO [Concomitant]
     Active Substance: ACETAMINOPHEN\HYDROCODONE BITARTRATE
     Dosage: UNK 4X/DAY (325 MG-5 MG 1 TAB(S) EVERY 6 HOURS)
     Route: 048
  22. ALBUTEROL-IPRATROPIUM [Concomitant]
     Dosage: UNK, 4X/DAY (2.5 MG-0.5 MG/3ML 3ML INHALED)

REACTIONS (9)
  - Discomfort [Unknown]
  - Headache [Unknown]
  - Convulsion [Unknown]
  - Low density lipoprotein increased [Unknown]
  - Hyperhidrosis [Unknown]
  - Cardiac disorder [Unknown]
  - Transient ischaemic attack [Unknown]
  - Burning sensation [Unknown]
  - Dyspnoea [Unknown]

NARRATIVE: CASE EVENT DATE: 2014
